FAERS Safety Report 9522884 (Version 1)
Quarter: 2013Q1

REPORT INFORMATION
  Report Type: Spontaneous
  Country: US (occurrence: None)
  Receive Date: 20130305
  Receipt Date: 20130305
  Transmission Date: 20140127
  Serious: Yes (Other)
  Sender: FDA-Public Use
  Company Number: 163-21880-12080502

PATIENT
  Age: 66 Year
  Sex: Female

DRUGS (3)
  1. REVLIMID (LENALIDOMIDE) (CAPSULES) [Suspect]
     Indication: MYELODYSPLASTIC SYNDROME
     Dosage: 5 MG 1 IN 1 D, PO - TEMPORARILY INTERRUPTED
     Route: 048
     Dates: start: 20120229
  2. ASPIRIN (ACETYLSALICYLIC ACID) [Concomitant]
  3. SUPER B COMPLEX (OTHER VITAMIN PRODUCTS, COMBINATIONS) [Concomitant]

REACTIONS (1)
  - Thrombocytopenia [None]
